FAERS Safety Report 9319883 (Version 1)
Quarter: 2013Q2

REPORT INFORMATION
  Report Type: Spontaneous
  Country: DK (occurrence: DK)
  Receive Date: 20130530
  Receipt Date: 20130530
  Transmission Date: 20140414
  Serious: Yes (Other)
  Sender: FDA-Public Use
  Company Number: DK-SANOFI-AVENTIS-2013SA051987

PATIENT
  Age: 69 Year
  Sex: Female

DRUGS (12)
  1. OXALIPLATIN [Suspect]
     Indication: BREAST CANCER
     Route: 065
  2. TAXOTERE [Suspect]
     Indication: BREAST CANCER
     Route: 065
  3. HERCEPTIN [Suspect]
     Indication: BREAST CANCER
     Route: 065
     Dates: start: 201002
  4. HERCEPTIN [Suspect]
     Indication: BREAST CANCER
     Route: 065
     Dates: start: 201210, end: 201303
  5. XELODA [Suspect]
     Indication: BREAST CANCER
     Route: 065
  6. EPIRUBICIN [Suspect]
     Indication: BREAST CANCER
     Route: 065
  7. LAPATINIB [Suspect]
     Indication: BREAST CANCER
     Route: 065
  8. TAXOL [Suspect]
     Indication: BREAST CANCER
     Route: 065
     Dates: start: 201210, end: 201303
  9. LETROZOLE [Suspect]
     Indication: BREAST CANCER
     Route: 065
     Dates: start: 200901
  10. LETROZOLE [Suspect]
     Indication: BREAST CANCER
     Route: 065
     Dates: start: 201002
  11. VINORELBINE [Suspect]
     Indication: BREAST CANCER
     Route: 065
  12. TAMOXIFEN [Suspect]
     Indication: BREAST CANCER
     Route: 065

REACTIONS (3)
  - Disease progression [Unknown]
  - Metastases to liver [Unknown]
  - Metastatic neoplasm [Unknown]
